FAERS Safety Report 16594591 (Version 1)
Quarter: 2019Q3

REPORT INFORMATION
  Report Type: Spontaneous
  Country: AR (occurrence: AR)
  Receive Date: 20190718
  Receipt Date: 20190718
  Transmission Date: 20191004
  Serious: Yes (Other)
  Sender: FDA-Public Use
  Company Number: AR-MYLANLABS-2019M1064490

PATIENT
  Age: 13 Year
  Sex: Male

DRUGS (1)
  1. LAPENAX [Suspect]
     Active Substance: CLOZAPINE
     Indication: IMPULSE-CONTROL DISORDER
     Dosage: UNK
     Dates: start: 20190701

REACTIONS (5)
  - Product use in unapproved indication [Unknown]
  - Lymphocyte count increased [Unknown]
  - Neutropenia [Unknown]
  - Mean cell haemoglobin concentration increased [Unknown]
  - Product use issue [Unknown]

NARRATIVE: CASE EVENT DATE: 20190701
